FAERS Safety Report 8878558 (Version 1)
Quarter: 2012Q4

REPORT INFORMATION
  Report Type: 
  Country: US (occurrence: US)
  Receive Date: 20121025
  Receipt Date: 20121025
  Transmission Date: 20130627
  Serious: No
  Sender: FDA-Public Use
  Company Number: US-AMGEN-USASP2012016596

PATIENT
  Age: 58 Year
  Sex: Female

DRUGS (2)
  1. ENBREL [Suspect]
     Indication: PSORIASIS
     Dosage: 50 mg, qwk
     Dates: start: 20120306
  2. ENBREL [Suspect]
     Indication: OSTEOARTHRITIS

REACTIONS (3)
  - Arthralgia [Not Recovered/Not Resolved]
  - Paranoia [Unknown]
  - Injection site pain [Unknown]
